FAERS Safety Report 7303493-5 (Version None)
Quarter: 2011Q1

REPORT INFORMATION
  Report Type: 
  Country: None (occurrence: None)
  Receive Date: 20110221
  Receipt Date: 20110210
  Transmission Date: 20110831
  Serious: Yes (Life-Threatening, Hospitalization, Other)
  Sender: FDA-Public Use
  Company Number: PHFR2011GB00959

PATIENT
  Sex: Female

DRUGS (6)
  1. CLOZARIL [Suspect]
     Indication: SCHIZOPHRENIA
     Dosage: UNK MG, UNK
     Route: 048
     Dates: start: 20030808, end: 20110211
  2. SENNA [Concomitant]
     Dosage: UNK DF, BID
     Route: 048
  3. MOVICOL [Concomitant]
     Dosage: UNK DF, BID
     Route: 048
  4. AMISULPRIDE [Concomitant]
     Dosage: 400 MG MANE, 800 MG NOCTE
     Route: 048
  5. CLOMIPRAMINE HCL [Concomitant]
     Dosage: 25 MG, TID
     Route: 048
  6. FORTISIP [Concomitant]
     Dosage: UNK DF, BID
     Route: 048

REACTIONS (7)
  - INFECTION [None]
  - SALIVARY HYPERSECRETION [None]
  - IMMOBILE [None]
  - AGGRESSION [None]
  - CELLULITIS [None]
  - GENERAL PHYSICAL HEALTH DETERIORATION [None]
  - PNEUMONIA [None]
